FAERS Safety Report 16580098 (Version 1)
Quarter: 2019Q3

REPORT INFORMATION
  Report Type: Spontaneous
  Country: FR (occurrence: FR)
  Receive Date: 20190716
  Receipt Date: 20190716
  Transmission Date: 20191004
  Serious: Yes (Life-Threatening, Hospitalization)
  Sender: FDA-Public Use
  Company Number: FR-TEVA-2019-FR-1077485

PATIENT
  Age: 87 Year
  Sex: Male

DRUGS (7)
  1. EPOLAMINE DE DICLOFENAC [Interacting]
     Active Substance: DICLOFENAC EPOLAMINE
     Indication: SCIATICA
     Route: 003
     Dates: start: 20190611, end: 20190617
  2. DICLOFENAC SODIQUE [Suspect]
     Active Substance: DICLOFENAC SODIUM
     Indication: SCIATICA
     Route: 048
     Dates: start: 20190611, end: 20190617
  3. FUROSEMIDE. [Interacting]
     Active Substance: FUROSEMIDE
     Indication: HYPERTENSION
     Route: 048
  4. ALDACTONE [Interacting]
     Active Substance: SPIRONOLACTONE
     Indication: HYPERTENSION
     Route: 048
  5. FLECAINE L.P. 150 MG, GELULE A LIBERATION PROLONGEE [Concomitant]
     Active Substance: FLECAINIDE
  6. ESOMEPRAZOLE. [Concomitant]
     Active Substance: ESOMEPRAZOLE MAGNESIUM
  7. PARACETAMOL [Concomitant]
     Active Substance: ACETAMINOPHEN

REACTIONS (4)
  - Hyperkalaemia [Recovered/Resolved]
  - Acute kidney injury [Recovering/Resolving]
  - Drug interaction [Unknown]
  - Malaise [Recovered/Resolved]

NARRATIVE: CASE EVENT DATE: 20190617
